FAERS Safety Report 9474678 (Version 2)
Quarter: 2013Q3

REPORT INFORMATION
  Report Type: Report from Study
  Country: NL (occurrence: NL)
  Receive Date: 20130823
  Receipt Date: 20130823
  Transmission Date: 20140515
  Serious: Yes (Hospitalization, Other)
  Sender: FDA-Public Use
  Company Number: NL-ABBOTT-13P-114-1073907-00

PATIENT
  Age: 35 Year
  Sex: Female

DRUGS (1)
  1. LUCRIN DEPOT [Suspect]
     Indication: LEIOMYOMA
     Route: 058
     Dates: start: 20130320, end: 20130320

REACTIONS (6)
  - Transfusion [Recovered/Resolved]
  - Leiomyoma [Recovered/Resolved]
  - Dysmenorrhoea [Recovered/Resolved]
  - Menorrhagia [Recovered/Resolved]
  - Hot flush [Not Recovered/Not Resolved]
  - Dizziness [Recovered/Resolved]
